FAERS Safety Report 24193525 (Version 1)
Quarter: 2024Q3

REPORT INFORMATION
  Report Type: Spontaneous
  Country: CN (occurrence: CN)
  Receive Date: 20240809
  Receipt Date: 20240809
  Transmission Date: 20241017
  Serious: Yes (Hospitalization, Disabling)
  Sender: ROCHE
  Company Number: CN-ROCHE-10000051930

PATIENT
  Age: 63 Year
  Sex: Female
  Weight: 59.2 kg

DRUGS (2)
  1. BEVACIZUMAB [Suspect]
     Active Substance: BEVACIZUMAB
     Indication: Endometrial cancer
     Route: 042
     Dates: start: 20240719, end: 20240719
  2. CADONILIMAB [Suspect]
     Active Substance: CADONILIMAB
     Indication: Endometrial cancer
     Route: 042
     Dates: start: 20240719, end: 20240719

REACTIONS (1)
  - Myelosuppression [Recovering/Resolving]

NARRATIVE: CASE EVENT DATE: 20240803
